FAERS Safety Report 25968725 (Version 3)
Quarter: 2025Q4

REPORT INFORMATION
  Report Type: Report from Study
  Country: CA (occurrence: CA)
  Receive Date: 20251028
  Receipt Date: 20251223
  Transmission Date: 20260117
  Serious: Yes (Other)
  Sender: PFIZER
  Company Number: CA-PFIZER INC-202500211556

PATIENT
  Age: 53 Year
  Sex: Female
  Weight: 93.2 kg

DRUGS (4)
  1. RUXIENCE [Suspect]
     Active Substance: RITUXIMAB-PVVR
     Indication: Rheumatoid arthritis
     Dosage: 1000 MG ,DAY 1 AND DAY 15
     Route: 042
     Dates: start: 20250423
  2. RUXIENCE [Suspect]
     Active Substance: RITUXIMAB-PVVR
     Dosage: 1000 MG, DAY 1 AND DAY 15
     Route: 042
     Dates: start: 20250507
  3. RUXIENCE [Suspect]
     Active Substance: RITUXIMAB-PVVR
     Dosage: 1000 MG, 29 WEEKS (DAY 1 AND DAY 15)
     Route: 042
     Dates: start: 20251125
  4. RUXIENCE [Suspect]
     Active Substance: RITUXIMAB-PVVR
     Dosage: 1000 MG, AFTER 3 WEEKS AND 1 DAY (DAY 1 AND DAY 15)
     Route: 042
     Dates: start: 20251217

REACTIONS (5)
  - Trismus [Recovered/Resolved]
  - Haematochezia [Recovered/Resolved]
  - Migraine [Unknown]
  - Weight decreased [Not Recovered/Not Resolved]
  - Inappropriate schedule of product administration [Unknown]

NARRATIVE: CASE EVENT DATE: 20250101
